FAERS Safety Report 20852807 (Version 1)
Quarter: 2022Q2

REPORT INFORMATION
  Report Type: Spontaneous
  Country: US (occurrence: None)
  Receive Date: 20220519
  Receipt Date: 20220519
  Transmission Date: 20220721
  Serious: Yes (Death)
  Sender: FDA-Public Use
  Company Number: None

PATIENT
  Age: 93 Year
  Sex: Female

DRUGS (1)
  1. TEMOZOLOMIDE [Suspect]
     Active Substance: TEMOZOLOMIDE
     Dosage: 250MG OTHER ORAL
     Route: 048
     Dates: start: 202202, end: 20220328

REACTIONS (1)
  - Death [None]

NARRATIVE: CASE EVENT DATE: 20220507
